FAERS Safety Report 8610973-9 (Version None)
Quarter: 2012Q3

REPORT INFORMATION
  Report Type: 
  Country: None (occurrence: None)
  Receive Date: 20120809
  Receipt Date: 20120801
  Transmission Date: 20120928
  Serious: Yes (Other)
  Sender: FDA-Public Use
  Company Number: 2012SA050706

PATIENT
  Age: 23 Year
  Sex: Female
  Weight: 81 kg

DRUGS (3)
  1. ICY HOT NO MESS [Suspect]
     Indication: NECK PAIN
     Dosage: ONCE;TOPICAL
     Route: 061
     Dates: start: 20120712, end: 20120712
  2. ICY HOT NO MESS [Suspect]
     Indication: MUSCULOSKELETAL PAIN
     Dosage: ONCE;TOPICAL
     Route: 061
     Dates: start: 20120712, end: 20120712
  3. IBUPROFEN [Concomitant]

REACTIONS (5)
  - NECK PAIN [None]
  - SKIN DISCOLOURATION [None]
  - CHEMICAL BURN OF SKIN [None]
  - BLISTER [None]
  - PRURITUS [None]
